FAERS Safety Report 9372360 (Version 1)
Quarter: 2013Q2

REPORT INFORMATION
  Report Type: Spontaneous
  Country: TW (occurrence: TW)
  Receive Date: 20130627
  Receipt Date: 20130627
  Transmission Date: 20140414
  Serious: Yes (Death, Hospitalization, Other)
  Sender: FDA-Public Use
  Company Number: TW-AMGEN-TWNSP2013044657

PATIENT
  Age: 71 Year
  Sex: Female

DRUGS (5)
  1. ENBREL [Suspect]
     Indication: RHEUMATOID ARTHRITIS
     Dosage: 25 MG, WEEKLY
     Route: 058
     Dates: start: 20070722, end: 20130603
  2. NORVASC [Concomitant]
     Dosage: 5 MG, 1X/DAY
     Route: 048
     Dates: start: 20091007
  3. XANAX [Concomitant]
     Dosage: 5 MG, 1X/DAY
     Route: 048
     Dates: start: 20091007
  4. SENNOSIDES A+B [Concomitant]
     Dosage: 1 DF, 1X/DAY
     Route: 048
     Dates: start: 20091007
  5. CALCIUM [Concomitant]
     Dosage: 1 DF, 2X/DAY
     Route: 048
     Dates: start: 20091007

REACTIONS (3)
  - Renal failure [Fatal]
  - Vomiting [Unknown]
  - Sepsis [Fatal]
